FAERS Safety Report 8350491-9 (Version None)
Quarter: 2012Q2

REPORT INFORMATION
  Report Type: 
  Country: None (occurrence: None)
  Receive Date: 20120510
  Receipt Date: 20120504
  Transmission Date: 20120825
  Serious: Yes (Hospitalization)
  Sender: FDA-Public Use
  Company Number: US-BAYER-2012-044632

PATIENT
  Age: 40 Year
  Sex: Female
  Weight: 139.23 kg

DRUGS (18)
  1. SYNTHROID [Concomitant]
     Dosage: 50 UNK, UNK
     Route: 048
  2. LEVBID [Concomitant]
     Dosage: 0.375 MG/ 2 TIMES A DAY AS NEEDED
     Route: 048
  3. PRILOSEC [Concomitant]
  4. DROSPIRENONE AND ETHINYL ESTRADIOL [Suspect]
     Dosage: UNK
     Dates: start: 20110115, end: 20110726
  5. CARAFATE [Concomitant]
     Dosage: 2 GRAM/ DAILY
     Route: 048
  6. NEURONTIN [Concomitant]
     Dosage: 100 MG/ 2 TIMES DAILY AS NEEDED
     Route: 048
  7. NEURONTIN [Concomitant]
  8. HYDROCODONE BITARTRATE + ACETAMINOPHEN [Concomitant]
     Dosage: 5/500MG, UNK
  9. PAMELOR [Concomitant]
     Dosage: UNK
     Dates: start: 20110607
  10. PRILOSEC [Concomitant]
     Dosage: 40 MG/ DAILY
     Route: 048
  11. VESICARE [Concomitant]
     Dosage: 5 MG, QD
     Route: 048
  12. NORTRIPTYLINE HCL [Concomitant]
     Dosage: 10 MG, UNK
  13. NEURONTIN [Concomitant]
     Dosage: 300 MG/ AT BEDTIME
     Route: 048
  14. ULTRAM [Concomitant]
     Indication: FIBROMYALGIA
     Dosage: 50 MG/ AT BEDTIME
     Route: 048
  15. VICODIN [Concomitant]
     Dosage: UNK
     Dates: start: 20110607
  16. YASMIN [Suspect]
     Dosage: UNK
     Dates: start: 20100101
  17. PROVENTIL [Concomitant]
     Dosage: 2 PUFFS EVERY 6 HOURS AS NEEDED
     Route: 045
  18. VITAMIN D [Concomitant]
     Dosage: 200 MG, UNK

REACTIONS (2)
  - PULMONARY EMBOLISM [None]
  - DEEP VEIN THROMBOSIS [None]
